FAERS Safety Report 16224847 (Version 1)
Quarter: 2019Q2

REPORT INFORMATION
  Report Type: Spontaneous
  Country: US (occurrence: US)
  Receive Date: 20190422
  Receipt Date: 20190422
  Transmission Date: 20190711
  Serious: Yes (Other)
  Sender: FDA-Public Use
  Company Number: US-PFIZER INC-2019165103

PATIENT
  Age: 33 Year
  Sex: Male

DRUGS (1)
  1. DILANTIN [Suspect]
     Active Substance: PHENYTOIN
     Dosage: UNK

REACTIONS (6)
  - Nausea [Unknown]
  - Balance disorder [Unknown]
  - Anticoagulation drug level above therapeutic [Unknown]
  - Flank pain [Unknown]
  - Vomiting [Unknown]
  - Seizure [Unknown]
